FAERS Safety Report 6452814-4 (Version None)
Quarter: 2009Q4

REPORT INFORMATION
  Report Type: 
  Country: None (occurrence: None)
  Receive Date: 20091124
  Receipt Date: 20091116
  Transmission Date: 20100525
  Serious: Yes (Hospitalization)
  Sender: FDA-Public Use
  Company Number: US-JNJFOC-20091105171

PATIENT
  Sex: Male
  Weight: 82.56 kg

DRUGS (5)
  1. FENTANYL CITRATE [Suspect]
     Indication: BACK PAIN
     Route: 062
  2. UNSPECIFIED TRANSDERMAL SYSTEM [Suspect]
     Indication: BACK PAIN
     Route: 062
  3. TIZANIDINE HCL [Concomitant]
     Indication: MUSCLE RELAXANT THERAPY
     Route: 048
  4. CLONAZEPAM [Concomitant]
     Indication: SLEEP DISORDER
     Route: 048
  5. ACTIQ [Concomitant]
     Indication: BREAKTHROUGH PAIN
     Route: 002

REACTIONS (4)
  - ADVERSE DRUG REACTION [None]
  - LOWER LIMB FRACTURE [None]
  - PRODUCT ADHESION ISSUE [None]
  - WRONG TECHNIQUE IN DRUG USAGE PROCESS [None]
